FAERS Safety Report 8820466 (Version 1)
Quarter: 2012Q4

REPORT INFORMATION
  Report Type: 
  Country: US (occurrence: US)
  Receive Date: 20121002
  Receipt Date: 20121002
  Transmission Date: 20130627
  Serious: No
  Sender: FDA-Public Use
  Company Number: US-009507513-1210USA000471

PATIENT
  Age: 66 Year
  Sex: Male

DRUGS (1)
  1. SAPHRIS [Suspect]
     Dosage: 10 mg, qd
     Route: 060
     Dates: end: 20120611

REACTIONS (2)
  - Parkinsonism [Recovering/Resolving]
  - Inappropriate schedule of drug administration [Unknown]
